FAERS Safety Report 5570463-7 (Version None)
Quarter: 2007Q4

REPORT INFORMATION
  Report Type: 
  Country: None (occurrence: None)
  Receive Date: 20071221
  Receipt Date: 20070924
  Transmission Date: 20080405
  Serious: No
  Sender: FDA-Public Use
  Company Number: US-BRISTOL-MYERS SQUIBB COMPANY-13917406

PATIENT
  Age: 70 Year
  Sex: Female
  Weight: 73 kg

DRUGS (13)
  1. ORENCIA [Suspect]
     Indication: RHEUMATOID ARTHRITIS
     Dosage: 1 DOSAGE FORM = 1 VIAL.  THREE COMPLETE TREATMENTS RECEIVED.
  2. COZAAR [Concomitant]
     Dosage: DOSE INCREASED FRO 50MG OD TO BID
  3. AMBIEN [Concomitant]
  4. ARAVA [Concomitant]
  5. EVOXAC [Concomitant]
  6. ZONEGRAN [Concomitant]
  7. METHOTREXATE BRAND UNKNOWN [Concomitant]
  8. FOLIC ACID [Concomitant]
  9. MULTI-VITAMIN [Concomitant]
  10. VITAMIN B-12 [Concomitant]
  11. ASPIRIN [Concomitant]
  12. MIACALCIN [Concomitant]
  13. ZEGERID [Concomitant]

REACTIONS (3)
  - BLOOD PRESSURE INCREASED [None]
  - HYPOAESTHESIA [None]
  - PAIN IN EXTREMITY [None]
